FAERS Safety Report 25758965 (Version 1)
Quarter: 2025Q3

REPORT INFORMATION
  Report Type: Spontaneous
  Country: EU (occurrence: EU)
  Receive Date: 20250904
  Receipt Date: 20250904
  Transmission Date: 20251021
  Serious: Yes (Other)
  Sender: TEVA
  Company Number: None

PATIENT
  Age: 85 Year
  Sex: Male

DRUGS (5)
  1. TORSEMIDE [Suspect]
     Active Substance: TORSEMIDE
     Indication: Product used for unknown indication
     Dosage: 2X1
     Route: 048
     Dates: start: 20250501
  2. BISOPROLOL [Concomitant]
     Active Substance: BISOPROLOL
     Indication: Hypertension
     Dosage: 1X1; REGULAR THERAPY
     Route: 048
  3. Amlopin [Concomitant]
     Indication: Hypertension
     Dosage: 1X1; REGULAR THERAPY
     Route: 048
  4. ELIQUIS [Concomitant]
     Active Substance: APIXABAN
     Indication: Prophylaxis
     Dosage: 1X1; REGULAR THERAPY
     Route: 048
  5. TRIMETAZIDINE DIHYDROCHLORIDE [Concomitant]
     Active Substance: TRIMETAZIDINE DIHYDROCHLORIDE
     Indication: Coronary artery disease
     Dosage: REGULAR THERAPY; PREDUCTAL MR
     Route: 048

REACTIONS (2)
  - Angina pectoris [Not Recovered/Not Resolved]
  - Nausea [Not Recovered/Not Resolved]

NARRATIVE: CASE EVENT DATE: 20250525
